FAERS Safety Report 10239597 (Version 2)
Quarter: 2014Q4

REPORT INFORMATION
  Report Type: Spontaneous
  Country: US (occurrence: US)
  Receive Date: 20140616
  Receipt Date: 20141218
  Transmission Date: 20150528
  Serious: Yes (Disabling, Other)
  Sender: FDA-Public Use
  Company Number: US-009507513-1406USA007304

PATIENT
  Sex: Male
  Weight: 84.35 kg

DRUGS (1)
  1. PROPECIA [Suspect]
     Active Substance: FINASTERIDE
     Indication: ALOPECIA
     Dosage: 1 MG, UNK
     Route: 048
     Dates: start: 2005, end: 2009

REACTIONS (34)
  - Headache [Unknown]
  - Cognitive disorder [Unknown]
  - Lacrimation increased [Unknown]
  - Abdominal discomfort [Unknown]
  - Joint dislocation [Unknown]
  - Varicella [Unknown]
  - Drug ineffective [Unknown]
  - Major depression [Unknown]
  - Flushing [Unknown]
  - Malaise [Unknown]
  - Spinal osteoarthritis [Unknown]
  - Tinnitus [Unknown]
  - Insomnia [Not Recovered/Not Resolved]
  - Substance abuse [Unknown]
  - Ejaculation failure [Unknown]
  - Vitamin D deficiency [Unknown]
  - Herpes simplex [Unknown]
  - Mumps [Unknown]
  - Deafness [Not Recovered/Not Resolved]
  - Testicular failure [Unknown]
  - Hypogonadism [Unknown]
  - Anxiety [Not Recovered/Not Resolved]
  - Loss of libido [Unknown]
  - Ejaculation disorder [Unknown]
  - Pain [Not Recovered/Not Resolved]
  - Sexual dysfunction [Unknown]
  - Erectile dysfunction [Unknown]
  - Tendon operation [Unknown]
  - Back pain [Not Recovered/Not Resolved]
  - Intervertebral disc degeneration [Unknown]
  - Dyslipidaemia [Unknown]
  - Treatment noncompliance [Unknown]
  - Fatigue [Unknown]
  - Thrombocytopenia [Unknown]

NARRATIVE: CASE EVENT DATE: 2007
